FAERS Safety Report 13345811 (Version 4)
Quarter: 2017Q1

REPORT INFORMATION
  Report Type: Report from Study
  Country: BR (occurrence: BR)
  Receive Date: 20170317
  Receipt Date: 20170324
  Transmission Date: 20170428
  Serious: Yes (Hospitalization, Other)
  Sender: FDA-Public Use
  Company Number: BR-JNJFOC-20170313546

PATIENT
  Age: 51 Year
  Sex: Male
  Weight: 92 kg

DRUGS (6)
  1. REMICADE [Suspect]
     Active Substance: INFLIXIMAB
     Indication: CROHN^S DISEASE
     Dosage: 5 VIALS??(ALSO REPORTED AS EVERY 2 MONTHS)
     Route: 042
     Dates: end: 201702
  2. BUPROPION. [Concomitant]
     Active Substance: BUPROPION
     Indication: DEPRESSION
     Route: 065
  3. APRAZ [Concomitant]
     Route: 065
  4. REMICADE [Suspect]
     Active Substance: INFLIXIMAB
     Indication: CROHN^S DISEASE
     Dosage: 5 VIALS??(ALSO REPORTED AS EVERY 2 MONTHS)
     Route: 042
     Dates: start: 2012
  5. VELIJA [Concomitant]
     Active Substance: DULOXETINE HYDROCHLORIDE
     Indication: DEPRESSION
     Route: 065
  6. REMICADE [Suspect]
     Active Substance: INFLIXIMAB
     Indication: CROHN^S DISEASE
     Route: 042
     Dates: start: 20140117

REACTIONS (11)
  - Weight decreased [Recovering/Resolving]
  - Torticollis [Unknown]
  - Depression [Not Recovered/Not Resolved]
  - Herpes zoster [Recovering/Resolving]
  - Seborrhoea [Unknown]
  - Gait disturbance [Recovered/Resolved]
  - Drug prescribing error [Unknown]
  - Decreased immune responsiveness [Not Recovered/Not Resolved]
  - Pneumonia [Recovered/Resolved]
  - Off label use [Unknown]
  - Abdominal distension [Unknown]

NARRATIVE: CASE EVENT DATE: 201511
